FAERS Safety Report 11197248 (Version 1)
Quarter: 2015Q2

REPORT INFORMATION
  Report Type: Spontaneous
  Country: US (occurrence: US)
  Receive Date: 20150617
  Receipt Date: 20150617
  Transmission Date: 20150821
  Serious: No
  Sender: FDA-Public Use
  Company Number: US-SA-2015SA033081

PATIENT
  Age: 63 Year
  Sex: Female
  Weight: 61.2 kg

DRUGS (6)
  1. CEREZYME [Suspect]
     Active Substance: IMIGLUCERASE
     Indication: LIPIDOSIS
     Dosage: DOSE:58.8 UNIT(S)/KILOGRAM BODYWEIGHT
     Route: 042
     Dates: start: 20130628
  2. EPIPEN [Concomitant]
     Active Substance: EPINEPHRINE
  3. VITAMIN D3 [Concomitant]
     Active Substance: CHOLECALCIFEROL
  4. CEREZYME [Suspect]
     Active Substance: IMIGLUCERASE
     Indication: LIPIDOSIS
     Dosage: DOSE:58.8 UNIT(S)/KILOGRAM BODYWEIGHT
     Route: 042
  5. NORMAL SALINE [Concomitant]
     Active Substance: SODIUM CHLORIDE
  6. CALCIUM MAGNESIUM ZINC [Concomitant]
     Active Substance: CALCIUM\MAGNESIUM\ZINC
     Dosage: CALCIUM MAGNESIUM ZINC CAPLET

REACTIONS (1)
  - Malaise [Unknown]
